FAERS Safety Report 5930478-3 (Version None)
Quarter: 2008Q4

REPORT INFORMATION
  Report Type: 
  Country: None (occurrence: None)
  Receive Date: 20081023
  Receipt Date: 20060306
  Transmission Date: 20090506
  Serious: Yes (Hospitalization, Other)
  Sender: FDA-Public Use
  Company Number: 2006AL001929

PATIENT
  Age: 62 Year
  Sex: Male

DRUGS (4)
  1. IBUPROFEN TABLETS [Suspect]
     Indication: HIP ARTHROPLASTY
     Dosage: PRN
  2. ASPIRIN [Concomitant]
  3. BENDROF'LUAZIDE [Concomitant]
  4. ATENOLOL [Concomitant]

REACTIONS (3)
  - EROSIVE DUODENITIS [None]
  - GASTROINTESTINAL HAEMORRHAGE [None]
  - MELAENA [None]
